FAERS Safety Report 8310393-0 (Version None)
Quarter: 2012Q2

REPORT INFORMATION
  Report Type: 
  Country: None (occurrence: None)
  Receive Date: 20120425
  Receipt Date: 20120420
  Transmission Date: 20120825
  Serious: Yes (Other)
  Sender: FDA-Public Use
  Company Number: US-GILEAD-2011-0047439

PATIENT
  Sex: Female

DRUGS (1)
  1. LETAIRIS [Suspect]
     Indication: PRODUCT USED FOR UNKNOWN INDICATION
     Dosage: 5 MG, UNK
     Route: 048
     Dates: start: 20080519

REACTIONS (5)
  - LUNG NEOPLASM MALIGNANT [None]
  - DIZZINESS [None]
  - BRONCHITIS [None]
  - HYPOTENSION [None]
  - SYNCOPE [None]
